FAERS Safety Report 4887961-1 (Version None)
Quarter: 2006Q1

REPORT INFORMATION
  Report Type: 
  Country: None (occurrence: None)
  Receive Date: 20060119
  Receipt Date: 20060119
  Transmission Date: 20060701
  Serious: Yes (Hospitalization, Other)
  Sender: FDA-Public Use
  Company Number: None

PATIENT
  Sex: Female
  Weight: 62.8 kg

DRUGS (11)
  1. CYCLOPHOSPHAMIDE [Suspect]
     Indication: BURKITT'S LYMPHOMA
     Dosage: SEE IMAGE
     Dates: start: 20051111, end: 20051115
  2. CYCLOPHOSPHAMIDE [Suspect]
     Indication: LEUKAEMIA
     Dosage: SEE IMAGE
     Dates: start: 20051111, end: 20051115
  3. CYTARABINE [Suspect]
     Dosage: SEE IMAGE
     Dates: start: 20051111, end: 20051111
  4. DOXORUBICIN HCL [Suspect]
     Dosage: SEE IMAGE
     Dates: start: 20051114, end: 20051115
  5. DOXORUBICIN HCL [Suspect]
     Dosage: SEE IMAGE
     Dates: start: 20051111
  6. LEUCOVORIN CALCIUM [Suspect]
     Dosage: SEE IMAGE
     Dates: start: 20051111, end: 20051111
  7. METHOTREXATE [Suspect]
     Dosage: SEE IMAGE
     Dates: start: 20051111
  8. RITUXIMAB (MOAB C2B8 ANTI CD20, CHIMERIC) [Suspect]
     Dosage: SEE IMAGE
     Dates: start: 20051118, end: 20051118
  9. RITUXIMAB (MOAB C2B8 ANTI CD20, CHIMERIC) [Suspect]
     Dosage: SEE IMAGE
     Dates: start: 20051111
  10. VINCRISTINE SULFATE [Suspect]
     Dosage: SEE IMAGE
     Dates: start: 20051111
  11. HYDROCORTISONE [Concomitant]

REACTIONS (5)
  - DEHYDRATION [None]
  - HYPOKALAEMIA [None]
  - MUCOSAL INFLAMMATION [None]
  - PHARYNGOLARYNGEAL PAIN [None]
  - STOMATITIS [None]
